FAERS Safety Report 16766291 (Version 1)
Quarter: 2019Q3

REPORT INFORMATION
  Report Type: Spontaneous
  Country: AR (occurrence: AR)
  Receive Date: 20190903
  Receipt Date: 20190903
  Transmission Date: 20191005
  Serious: Yes (Hospitalization)
  Sender: FDA-Public Use
  Company Number: AR-PFIZER INC-2019373975

PATIENT
  Age: 84 Year
  Sex: Female

DRUGS (1)
  1. XELJANZ [Suspect]
     Active Substance: TOFACITINIB CITRATE
     Indication: RHEUMATOID ARTHRITIS
     Dosage: 5 MG, 2X/DAY
     Dates: start: 20160322

REACTIONS (4)
  - Localised infection [Recovering/Resolving]
  - Urinary tract infection [Recovering/Resolving]
  - Speech disorder [Recovering/Resolving]
  - Delusion [Recovering/Resolving]

NARRATIVE: CASE EVENT DATE: 201908
